FAERS Safety Report 14274886 (Version 2)
Quarter: 2018Q1

REPORT INFORMATION
  Report Type: Report from Study
  Country: None (occurrence: US)
  Receive Date: 20171212
  Receipt Date: 20180102
  Transmission Date: 20180508
  Serious: Yes (Other)
  Sender: FDA-Public Use
  Company Number: US-VIFOR (INTERNATIONAL) INC.-VIT-2017-13097

PATIENT
  Age: 73 Year
  Sex: Female
  Weight: 52.21 kg

DRUGS (1)
  1. VELTASSA [Suspect]
     Active Substance: PATIROMER
     Indication: HYPERKALAEMIA

REACTIONS (2)
  - Drug dose omission [Unknown]
  - Apparent death [Not Recovered/Not Resolved]

NARRATIVE: CASE EVENT DATE: 201711
